FAERS Safety Report 17994664 (Version 1)
Quarter: 2020Q3

REPORT INFORMATION
  Report Type: Spontaneous
  Country: MX (occurrence: MX)
  Receive Date: 20200708
  Receipt Date: 20200708
  Transmission Date: 20201103
  Serious: Yes (Other)
  Sender: FDA-Public Use
  Company Number: MX-PFIZER INC-2020259558

PATIENT
  Age: 74 Year
  Sex: Female

DRUGS (1)
  1. AZULFIDINA [Suspect]
     Active Substance: SULFASALAZINE
     Dosage: 5 DF, DAILY(2 BY THE MORNING, 1 AT AFTERNOON AND 2 AT NIGHT)

REACTIONS (4)
  - Condition aggravated [Unknown]
  - Sjogren^s syndrome [Unknown]
  - Systemic scleroderma [Unknown]
  - Dermatosis [Unknown]
